FAERS Safety Report 8009119-X (Version None)
Quarter: 2011Q4

REPORT INFORMATION
  Report Type: 
  Country: None (occurrence: None)
  Receive Date: 20111227
  Receipt Date: 20111216
  Transmission Date: 20120403
  Serious: Yes (Hospitalization, Other)
  Sender: FDA-Public Use
  Company Number: US-ASTRAZENECA-2011SE45988

PATIENT
  Age: 54 Year
  Sex: Female
  Weight: 104.8 kg

DRUGS (7)
  1. COUMADIN [Concomitant]
     Indication: MITRAL VALVE REPLACEMENT
     Route: 048
  2. LEVOXYL [Concomitant]
     Indication: HYPOTHYROIDISM
     Route: 048
  3. COUMADIN [Concomitant]
     Indication: AORTIC VALVE REPLACEMENT
     Route: 048
  4. LISINOPRIL [Concomitant]
     Indication: HYPERTENSION
     Route: 048
  5. POTASSIUM [Concomitant]
     Indication: CARDIAC FAILURE CONGESTIVE
     Route: 048
  6. NEXIUM [Suspect]
     Indication: GASTROOESOPHAGEAL REFLUX DISEASE
     Route: 048
  7. BUMEX [Concomitant]
     Indication: CARDIAC FAILURE CONGESTIVE
     Route: 048

REACTIONS (2)
  - SYNCOPE [None]
  - ATRIOVENTRICULAR BLOCK [None]
